FAERS Safety Report 13277632 (Version 1)
Quarter: 2017Q1

REPORT INFORMATION
  Report Type: Spontaneous
  Country: GB (occurrence: GB)
  Receive Date: 20170228
  Receipt Date: 20170228
  Transmission Date: 20170428
  Serious: Yes (Life-Threatening)
  Sender: FDA-Public Use
  Company Number: GB-PFIZER INC-2017082910

PATIENT
  Age: 19 Year
  Sex: Male
  Weight: 115 kg

DRUGS (29)
  1. ABACAVIR. [Concomitant]
     Active Substance: ABACAVIR
     Dosage: UNK
  2. CITALOPRAM [Concomitant]
     Active Substance: CITALOPRAM HYDROBROMIDE
     Dosage: UNK
  3. DAPSONE. [Concomitant]
     Active Substance: DAPSONE
     Dosage: UNK
  4. HYDROCORTISONE. [Concomitant]
     Active Substance: HYDROCORTISONE
     Dosage: UNK
  5. PREDNISOLONE SODIUM PHOSPHATE. [Concomitant]
     Active Substance: PREDNISOLONE SODIUM PHOSPHATE
  6. SENNA /00571901/ [Concomitant]
  7. VANCOMYCIN [Concomitant]
     Active Substance: VANCOMYCIN
  8. NORMAL SALINE [Concomitant]
     Active Substance: SODIUM CHLORIDE
  9. SODIUM HYALURONATE [Concomitant]
     Active Substance: HYALURONATE SODIUM
  10. ENOXAPARIN [Concomitant]
     Active Substance: ENOXAPARIN
     Dosage: UNK
  11. LANSOPRAZOLE. [Concomitant]
     Active Substance: LANSOPRAZOLE
  12. LEVETIRACETAM. [Concomitant]
     Active Substance: LEVETIRACETAM
  13. ORAMORPH [Concomitant]
     Active Substance: MORPHINE SULFATE
  14. BISOPROLOL [Concomitant]
     Active Substance: BISOPROLOL
     Dosage: UNK
  15. CHLORHEXIDINE [Concomitant]
     Active Substance: CHLORHEXIDINE
     Dosage: UNK
  16. LACRI-LUBE [Concomitant]
  17. LAMIVUDINE. [Concomitant]
     Active Substance: LAMIVUDINE
  18. PARACETAMOL [Concomitant]
     Active Substance: ACETAMINOPHEN
  19. SPIRONOLACTONE. [Concomitant]
     Active Substance: SPIRONOLACTONE
  20. DOMPERIDONE [Concomitant]
     Active Substance: DOMPERIDONE
     Dosage: UNK
  21. DOLUTEGRAVIR [Concomitant]
     Active Substance: DOLUTEGRAVIR
     Dosage: UNK
  22. GLYCEROL SUPPOSITORIES [Concomitant]
     Dosage: UNK
  23. LACOSAMIDE. [Concomitant]
     Active Substance: LACOSAMIDE
  24. ONDANSETRON [Concomitant]
     Active Substance: ONDANSETRON
  25. SALBUTAMOL [Concomitant]
     Active Substance: ALBUTEROL
  26. SODIUM VALPROATE [Concomitant]
     Active Substance: VALPROATE SODIUM
  27. CYTARABINE. [Suspect]
     Active Substance: CYTARABINE
     Indication: HAEMATOPOIETIC STEM CELL MOBILISATION
     Dosage: 1760 MG, UNK
     Route: 042
     Dates: start: 20170212, end: 20170212
  28. LACTULOSE. [Concomitant]
     Active Substance: LACTULOSE
  29. PREGABALIN. [Concomitant]
     Active Substance: PREGABALIN

REACTIONS (1)
  - Hypoglycaemia [Recovered/Resolved]

NARRATIVE: CASE EVENT DATE: 20170212
